APPROVED DRUG PRODUCT: BENAZEPRIL HYDROCHLORIDE
Active Ingredient: BENAZEPRIL HYDROCHLORIDE
Strength: 10MG
Dosage Form/Route: TABLET;ORAL
Application: A076267 | Product #002 | TE Code: AB
Applicant: HERITAGE PHARMA LABS INC
Approved: Feb 11, 2004 | RLD: No | RS: No | Type: RX